FAERS Safety Report 9122354 (Version 1)
Quarter: 2013Q1

REPORT INFORMATION
  Report Type: Spontaneous
  Country: FR (occurrence: FR)
  Receive Date: 20130227
  Receipt Date: 20130227
  Transmission Date: 20140127
  Serious: Yes (Other)
  Sender: FDA-Public Use
  Company Number: FR-PFIZER INC-2013069570

PATIENT
  Age: 83 Year
  Sex: Male

DRUGS (15)
  1. CORDARONE [Suspect]
     Dosage: 200 MILLIGRAM(S);DAILY
     Route: 048
     Dates: start: 20120507
  2. LASILIX [Interacting]
     Indication: HYPERTENSION
     Dosage: 40 MG DAILY
     Route: 048
     Dates: end: 201206
  3. LASILIX [Interacting]
     Dosage: 40 MG DAILY
     Route: 048
     Dates: start: 20120724
  4. PRADAXA [Interacting]
     Indication: EMBOLISM
     Dosage: 110 MG TWICE DAILY
     Route: 048
     Dates: start: 20120507, end: 20120912
  5. COVERAM [Interacting]
     Indication: HYPERTENSION
     Dosage: 5 MG/5MG DAILY
     Route: 048
     Dates: start: 20120507, end: 20120706
  6. CARDENSIEL [Concomitant]
     Dosage: UNK
  7. AMLOR [Concomitant]
     Indication: HYPERTENSION
     Dosage: UNK
     Dates: end: 20120507
  8. AMLOR [Concomitant]
     Dosage: 2.5 MG, UNK
     Dates: start: 20120706
  9. TRIATEC [Concomitant]
     Indication: HYPERTENSION
     Dosage: UNK
     Dates: end: 20120507
  10. TRIATEC [Concomitant]
     Dosage: 2.5 MG, UNK
     Dates: start: 20120706
  11. DUOPLAVIN [Concomitant]
     Dosage: UNK
     Dates: start: 20120912
  12. TAHOR [Concomitant]
     Indication: HYPERCHOLESTEROLAEMIA
     Dosage: UNK
  13. PERMIXON [Concomitant]
     Dosage: UNK
  14. XATRAL [Concomitant]
     Dosage: UNK
  15. ZYLORIC [Concomitant]
     Dosage: UNK

REACTIONS (2)
  - Drug interaction [Unknown]
  - Renal failure [Recovered/Resolved]
